FAERS Safety Report 24330770 (Version 1)
Quarter: 2024Q3

REPORT INFORMATION
  Report Type: Spontaneous
  Country: CN (occurrence: None)
  Receive Date: 20240918
  Receipt Date: 20240918
  Transmission Date: 20241017
  Serious: Yes (Hospitalization)
  Sender: ASTRAZENECA
  Company Number: 2024A202674

PATIENT
  Age: 60 Year
  Sex: Male

DRUGS (1)
  1. NEXIUM [Suspect]
     Active Substance: ESOMEPRAZOLE MAGNESIUM
     Route: 048

REACTIONS (9)
  - Oesophageal discomfort [Unknown]
  - Hypophagia [Unknown]
  - Decreased appetite [Unknown]
  - Abdominal distension [Unknown]
  - Feeding disorder [Unknown]
  - Dyspepsia [Unknown]
  - Oesophageal oedema [Unknown]
  - Abdominal pain upper [Unknown]
  - Intentional dose omission [Unknown]
